FAERS Safety Report 7225119-1 (Version None)
Quarter: 2011Q1

REPORT INFORMATION
  Report Type: 
  Country: None (occurrence: None)
  Receive Date: 20110113
  Receipt Date: 20110103
  Transmission Date: 20110831
  Serious: Yes (Hospitalization, Congenital Anomaly)
  Sender: FDA-Public Use
  Company Number: A0684831A

PATIENT
  Sex: Female

DRUGS (2)
  1. PAXIL [Suspect]
  2. TYLENOL W/ CODEINE [Concomitant]

REACTIONS (6)
  - CONGENITAL ARTERIAL MALFORMATION [None]
  - DRUG EXPOSURE DURING PREGNANCY [None]
  - RIGHT AORTIC ARCH [None]
  - TRACHEOMALACIA [None]
  - RESPIRATORY DISTRESS [None]
  - DEVELOPMENTAL DELAY [None]
